FAERS Safety Report 15854516 (Version 2)
Quarter: 2019Q1

REPORT INFORMATION
  Report Type: Spontaneous
  Country: US (occurrence: US)
  Receive Date: 20190122
  Receipt Date: 20190221
  Transmission Date: 20190417
  Serious: Yes (Hospitalization)
  Sender: FDA-Public Use
  Company Number: US-ASTRAZENECA-2019SE07928

PATIENT
  Sex: Female

DRUGS (3)
  1. SYMBICORT [Suspect]
     Active Substance: BUDESONIDE\FORMOTEROL FUMARATE DIHYDRATE
     Dosage: 2 INHALATIONS, TWICE A DAY UNKNOWN
     Route: 055
     Dates: end: 2017
  2. SYMBICORT [Suspect]
     Active Substance: BUDESONIDE\FORMOTEROL FUMARATE DIHYDRATE
     Dosage: 160/4.5 MCG, UNKNOWN UNKNOWN
     Route: 055
     Dates: start: 2015
  3. SYMBICORT [Suspect]
     Active Substance: BUDESONIDE\FORMOTEROL FUMARATE DIHYDRATE
     Dosage: 2 INHALATIONS, TWICE A DAY UNKNOWN
     Route: 055
     Dates: start: 2018

REACTIONS (9)
  - Dyspnoea [Unknown]
  - Gait disturbance [Unknown]
  - Back pain [Unknown]
  - Product dose omission [Unknown]
  - Visual impairment [Unknown]
  - Memory impairment [Unknown]
  - Bone pain [Unknown]
  - Device issue [Unknown]
  - Pain in extremity [Unknown]
